FAERS Safety Report 4834769-9 (Version None)
Quarter: 2005Q4

REPORT INFORMATION
  Report Type: 
  Country: None (occurrence: None)
  Receive Date: 20051122
  Receipt Date: 20051011
  Transmission Date: 20060501
  Serious: No
  Sender: FDA-Public Use
  Company Number: US-BRISTOL-MYERS SQUIBB COMPANY-13140256

PATIENT
  Age: 77 Year
  Sex: Female
  Weight: 63 kg

DRUGS (10)
  1. PRAVACHOL [Suspect]
     Dates: end: 20051005
  2. TRICOR [Concomitant]
  3. TOPROL-XL [Concomitant]
  4. ZESTORETIC [Concomitant]
     Dosage: DOSAGE FORM  = 20-25 MG
  5. SYNTHROID [Concomitant]
  6. ASPIRIN [Concomitant]
  7. CALCIUM GLUCONATE [Concomitant]
  8. GLUCOSAMINE [Concomitant]
  9. CHONDROITIN [Concomitant]
  10. FLU VACCINE [Concomitant]
     Dates: start: 20050921, end: 20050921

REACTIONS (2)
  - ARTHRALGIA [None]
  - MYALGIA [None]
